FAERS Safety Report 25282660 (Version 2)
Quarter: 2025Q2

REPORT INFORMATION
  Report Type: Spontaneous
  Country: US (occurrence: US)
  Receive Date: 20250508
  Receipt Date: 20250519
  Transmission Date: 20250716
  Serious: Yes (Hospitalization)
  Sender: TEVA
  Company Number: US-TEVA-VS-3327637

PATIENT
  Age: 36 Year
  Sex: Male

DRUGS (10)
  1. VORICONAZOLE [Interacting]
     Active Substance: VORICONAZOLE
     Indication: Aspergillus infection
     Route: 065
  2. LEVOFLOXACIN [Concomitant]
     Active Substance: LEVOFLOXACIN
     Indication: Bone tuberculosis
     Route: 042
  3. ISONIAZID [Concomitant]
     Active Substance: ISONIAZID
     Indication: Bone tuberculosis
     Route: 042
  4. PYRIDOXINE [Concomitant]
     Active Substance: PYRIDOXINE
     Indication: Bone tuberculosis
     Route: 048
  5. PYRAZINAMIDE [Concomitant]
     Active Substance: PYRAZINAMIDE
     Indication: Bone tuberculosis
     Route: 042
  6. LINEZOLID [Concomitant]
     Active Substance: LINEZOLID
     Indication: Bone tuberculosis
     Route: 042
  7. ISAVUCONAZOLE [Interacting]
     Active Substance: ISAVUCONAZOLE
     Indication: Aspergillus infection
     Route: 065
  8. DEXAMETHASONE ACETATE [Concomitant]
     Active Substance: DEXAMETHASONE ACETATE
     Indication: Bone tuberculosis
     Route: 065
  9. RIFABUTIN [Interacting]
     Active Substance: RIFABUTIN
     Indication: Bone tuberculosis
     Route: 065
  10. ETHAMBUTOL [Concomitant]
     Active Substance: ETHAMBUTOL HYDROCHLORIDE
     Indication: Bone tuberculosis
     Route: 048

REACTIONS (2)
  - Drug level abnormal [Unknown]
  - Drug interaction [Unknown]
